FAERS Safety Report 24112422 (Version 1)
Quarter: 2024Q3

REPORT INFORMATION
  Report Type: Report from Study
  Country: US (occurrence: None)
  Receive Date: 20240719
  Receipt Date: 20240719
  Transmission Date: 20241017
  Serious: Yes (Other)
  Sender: ASTRAZENECA
  Company Number: 2019SF75679

PATIENT
  Sex: Female

DRUGS (1)
  1. LYNPARZA [Suspect]
     Active Substance: OLAPARIB
     Indication: Ovarian cancer
     Route: 048

REACTIONS (7)
  - Fall [Unknown]
  - Glomerular filtration rate decreased [Unknown]
  - Jaw fracture [Unknown]
  - Craniofacial fracture [Unknown]
  - Pain [Unknown]
  - Loss of personal independence in daily activities [Unknown]
  - Oropharyngeal pain [Unknown]
